FAERS Safety Report 19001199 (Version 1)
Quarter: 2021Q1

REPORT INFORMATION
  Report Type: Spontaneous
  Country: JP (occurrence: JP)
  Receive Date: 20210312
  Receipt Date: 20210312
  Transmission Date: 20210420
  Serious: Yes (Death, Other)
  Sender: FDA-Public Use
  Company Number: JP-SUN PHARMACEUTICAL INDUSTRIES LTD-2021R1-283937

PATIENT
  Age: 67 Year
  Sex: Female

DRUGS (6)
  1. LEVOFOLINATE [Suspect]
     Active Substance: LEVOLEUCOVORIN CALCIUM
     Indication: CHEMOTHERAPY
     Dosage: UNK
     Route: 065
  2. OXALIPLATIN. [Suspect]
     Active Substance: OXALIPLATIN
     Indication: CHEMOTHERAPY
     Dosage: UNK
     Route: 065
  3. IRINOTECAN 40MG [Suspect]
     Active Substance: IRINOTECAN
     Indication: CHEMOTHERAPY
     Dosage: UNK
     Route: 065
  4. NAB?PACLITAXEL [Suspect]
     Active Substance: PACLITAXEL
     Indication: CHEMOTHERAPY
     Dosage: UNK (6 COURSES)
     Route: 065
  5. GEMCITABINE. [Suspect]
     Active Substance: GEMCITABINE
     Indication: CHEMOTHERAPY
     Dosage: UNK (6 COURSES)
     Route: 065
  6. FLUOROURACIL. [Suspect]
     Active Substance: FLUOROURACIL
     Indication: CHEMOTHERAPY
     Dosage: UNK
     Route: 065

REACTIONS (6)
  - Nausea [Unknown]
  - Renal impairment [Recovering/Resolving]
  - Oliguria [Recovering/Resolving]
  - Anaemia [Unknown]
  - Oedema peripheral [Unknown]
  - Neoplasm progression [Fatal]
